FAERS Safety Report 7102160 (Version 5)
Quarter: 2014Q2

REPORT INFORMATION
  Report Type: Spontaneous
  Country: US (occurrence: US)
  Receive Date: 20090901
  Receipt Date: 20140502
  Transmission Date: 20141212
  Serious: Yes (Death, Other)
  Sender: FDA-Public Use
  Company Number: US-JNJFOC-20090900071

PATIENT
  Age: 51 Year
  Sex: Female

DRUGS (2)
  1. FENTANYL [Suspect]
     Indication: COMPLETED SUICIDE
     Route: 048
  2. FENTANYL [Suspect]
     Indication: DRUG ABUSE
     Route: 048

REACTIONS (10)
  - Apnoea [Fatal]
  - Brain injury [Fatal]
  - Toxicity to various agents [Unknown]
  - Blood lactic acid increased [Not Recovered/Not Resolved]
  - Intentional product misuse [Not Recovered/Not Resolved]
  - Hypoxia [Not Recovered/Not Resolved]
  - Loss of consciousness [Not Recovered/Not Resolved]
  - Troponin increased [Not Recovered/Not Resolved]
  - Blood creatinine increased [Not Recovered/Not Resolved]
  - Liver function test abnormal [Not Recovered/Not Resolved]
